FAERS Safety Report 9184169 (Version 1)
Quarter: 2013Q1

REPORT INFORMATION
  Report Type: Spontaneous
  Country: US (occurrence: US)
  Receive Date: 20130322
  Receipt Date: 20130322
  Transmission Date: 20140127
  Serious: Yes (Hospitalization)
  Sender: FDA-Public Use
  Company Number: US-BRISTOL-MYERS SQUIBB COMPANY-16453227

PATIENT
  Age: 57 Year
  Sex: Male

DRUGS (5)
  1. ERBITUX [Suspect]
     Indication: RECTAL CANCER METASTATIC
     Dosage: ROUTE :IV(PAC).
     Route: 042
     Dates: start: 20120116, end: 20120116
  2. ALOXI [Concomitant]
     Indication: PREMEDICATION
     Dosage: 1DF:0.25(UNITS NO.S).
  3. ZANTAC [Concomitant]
     Indication: PREMEDICATION
  4. DECADRON [Concomitant]
     Indication: PREMEDICATION
  5. EMEND [Concomitant]
     Indication: PREMEDICATION

REACTIONS (2)
  - Malignant neoplasm progression [Unknown]
  - Hypersensitivity [Unknown]
